FAERS Safety Report 9411719 (Version 2)
Quarter: 2016Q1

REPORT INFORMATION
  Report Type: Spontaneous
  Country: US (occurrence: US)
  Receive Date: 20130722
  Receipt Date: 20160110
  Transmission Date: 20160526
  Serious: No
  Sender: FDA-Public Use
  Company Number: US-COVIDIEN/TYCO HEALTHCARE/MALLINCKRODT-T201301115

PATIENT
  Age: 63 Year
  Sex: Male

DRUGS (1)
  1. MORPHINE EXTENDED-RELEASE [Suspect]
     Active Substance: MORPHINE SULFATE
     Indication: PRODUCT USED FOR UNKNOWN INDICATION
     Dosage: UNK

REACTIONS (5)
  - Abdominal distension [Unknown]
  - Asthenia [Unknown]
  - Peripheral coldness [Unknown]
  - Decreased appetite [Unknown]
  - Weight decreased [Unknown]
